FAERS Safety Report 7811237-3 (Version None)
Quarter: 2011Q4

REPORT INFORMATION
  Report Type: 
  Country: None (occurrence: None)
  Receive Date: 20111013
  Receipt Date: 20111003
  Transmission Date: 20120403
  Serious: Yes (Hospitalization, Other)
  Sender: FDA-Public Use
  Company Number: US-BAYER-2010-006224

PATIENT
  Age: 29 Year
  Sex: Female
  Weight: 104 kg

DRUGS (6)
  1. YAZ [Suspect]
     Indication: CONTRACEPTION
     Dosage: UNK
     Route: 048
     Dates: start: 20070501, end: 20090401
  2. YAZ [Suspect]
     Indication: PREMENSTRUAL SYNDROME
  3. PRILOSEC [Concomitant]
     Dosage: 20 MG, BID
     Route: 048
     Dates: start: 20080801
  4. YAZ [Suspect]
  5. ZANTAC [Concomitant]
     Dosage: 30 MG, UNK
     Route: 048
     Dates: start: 20080801
  6. IBUPROFEN (ADVIL) [Concomitant]
     Indication: PAIN
     Dosage: 800 MG, UNK

REACTIONS (8)
  - ABDOMINAL PAIN [None]
  - GALLBLADDER DISORDER [None]
  - CHOLECYSTITIS CHRONIC [None]
  - CHOLECYSTITIS ACUTE [None]
  - DEPRESSION [None]
  - CHOLELITHIASIS [None]
  - MENTAL DISORDER [None]
  - ANXIETY [None]
